FAERS Safety Report 23605752 (Version 2)
Quarter: 2024Q1

REPORT INFORMATION
  Report Type: Spontaneous
  Country: US (occurrence: US)
  Receive Date: 20240307
  Receipt Date: 20240313
  Transmission Date: 20240409
  Serious: No
  Sender: FDA-Public Use
  Company Number: US-ELI_LILLY_AND_COMPANY-US202403003515

PATIENT
  Age: 74 Year
  Sex: Female

DRUGS (2)
  1. TALTZ [Suspect]
     Active Substance: IXEKIZUMAB
     Indication: Psoriasis
     Dosage: 80 MG, UNKNOWN
     Route: 058
     Dates: start: 202311
  2. TALTZ [Suspect]
     Active Substance: IXEKIZUMAB
     Indication: Psoriatic arthropathy

REACTIONS (2)
  - Pollakiuria [Not Recovered/Not Resolved]
  - Abdominal discomfort [Not Recovered/Not Resolved]
